FAERS Safety Report 5011822-0 (Version None)
Quarter: 2006Q2

REPORT INFORMATION
  Report Type: 
  Country: None (occurrence: None)
  Receive Date: 20060526
  Receipt Date: 20060320
  Transmission Date: 20061013
  Serious: Yes (Death)
  Sender: FDA-Public Use
  Company Number: US-AVENTIS-200612795US

PATIENT
  Age: 54 Year
  Sex: Female

DRUGS (6)
  1. RIFAMPIN [Suspect]
     Indication: TUBERCULOSIS
     Dates: start: 20010812, end: 20010912
  2. PYRAZINAMIDE [Suspect]
     Indication: TUBERCULOSIS
     Dates: start: 20010812, end: 20010912
  3. SYNTHROID [Concomitant]
     Dosage: DOSE: UNK
  4. PREMPRO [Concomitant]
     Dosage: DOSE: UNK
  5. PAXIL [Concomitant]
     Dosage: DOSE: UNK
  6. PIROXICAM [Concomitant]
     Dosage: DOSE: UNK

REACTIONS (9)
  - ALANINE AMINOTRANSFERASE INCREASED [None]
  - ASPARTATE AMINOTRANSFERASE INCREASED [None]
  - BLOOD BILIRUBIN INCREASED [None]
  - CHOLESTASIS [None]
  - HEPATIC CIRRHOSIS [None]
  - HEPATITIS [None]
  - HEPATITIS CHRONIC ACTIVE [None]
  - HEPATOCELLULAR DAMAGE [None]
  - INTERNATIONAL NORMALISED RATIO INCREASED [None]
